FAERS Safety Report 7095721-9 (Version None)
Quarter: 2010Q4

REPORT INFORMATION
  Report Type: 
  Country: None (occurrence: None)
  Receive Date: 20101111
  Receipt Date: 20101104
  Transmission Date: 20110411
  Serious: Yes (Death, Life-Threatening)
  Sender: FDA-Public Use
  Company Number: JP-NOVOPROD-317816

PATIENT
  Age: 88 Year
  Sex: Male

DRUGS (1)
  1. NOVOSEVEN [Suspect]
     Indication: ACQUIRED HAEMOPHILIA
     Dosage: 8.7-23.2 MG/DAY
     Route: 042
     Dates: start: 20101018, end: 20101022

REACTIONS (1)
  - GASTROINTESTINAL HAEMORRHAGE [None]
